FAERS Safety Report 21925442 (Version 1)
Quarter: 2023Q1

REPORT INFORMATION
  Report Type: Spontaneous
  Country: US (occurrence: None)
  Receive Date: 20230127
  Receipt Date: 20230127
  Transmission Date: 20230418
  Serious: Yes (Other)
  Sender: FDA-Public Use
  Company Number: None

PATIENT
  Age: 81 Year
  Sex: Male
  Weight: 72.9 kg

DRUGS (1)
  1. ABIRATERONE ACETATE [Suspect]
     Active Substance: ABIRATERONE ACETATE
     Indication: Bladder cancer
     Dosage: OTHER QUANTITY : ABIRATERONE;?FREQUENCY : DAILY;?
     Route: 048

REACTIONS (1)
  - Hospice care [None]

NARRATIVE: CASE EVENT DATE: 20230115
